FAERS Safety Report 13496437 (Version 3)
Quarter: 2017Q3

REPORT INFORMATION
  Report Type: Spontaneous
  Country: US (occurrence: US)
  Receive Date: 20170428
  Receipt Date: 20170725
  Transmission Date: 20171127
  Serious: No
  Sender: FDA-Public Use
  Company Number: US-JAZZ-2017-US-001268

PATIENT
  Age: 64 Year
  Sex: Female

DRUGS (16)
  1. BIOTIN [Concomitant]
     Active Substance: BIOTIN
  2. PROAIR HFA [Concomitant]
     Active Substance: ALBUTEROL SULFATE
  3. VITAMIN D3 [Concomitant]
     Active Substance: CHOLECALCIFEROL
  4. ZINC CHELATE [Concomitant]
  5. FLONASE                            /00908302/ [Concomitant]
     Active Substance: MOMETASONE FUROATE
  6. QUININE SULFATE. [Concomitant]
     Active Substance: QUININE SULFATE
  7. LISINOPRIL. [Concomitant]
     Active Substance: LISINOPRIL
  8. TRAZODONE [Concomitant]
     Active Substance: TRAZODONE HYDROCHLORIDE
  9. XYREM [Suspect]
     Active Substance: SODIUM OXYBATE
     Indication: NARCOLEPSY
     Dosage: 2.25 G, BID
     Route: 048
     Dates: start: 20170125, end: 2017
  10. CALCIUM VITAMIN D3 [Concomitant]
  11. FISH OIL [Concomitant]
     Active Substance: FISH OIL
  12. LEVOTHYROXINE                      /00068002/ [Concomitant]
     Active Substance: LEVOTHYROXINE
  13. SERTRALINE HCL [Concomitant]
     Active Substance: SERTRALINE HYDROCHLORIDE
  14. GLUCOSAMINE HCL [Concomitant]
     Active Substance: GLUCOSAMINE
  15. NAPROXEN. [Concomitant]
     Active Substance: NAPROXEN
  16. SIMVASTATIN. [Concomitant]
     Active Substance: SIMVASTATIN

REACTIONS (8)
  - Joint injury [Unknown]
  - Nausea [Recovered/Resolved]
  - Fall [Recovered/Resolved]
  - Somnambulism [Unknown]
  - Micturition urgency [Unknown]
  - Head injury [Unknown]
  - Ligament sprain [Unknown]
  - Contusion [Unknown]

NARRATIVE: CASE EVENT DATE: 2017
